FAERS Safety Report 17705011 (Version 1)
Quarter: 2020Q2

REPORT INFORMATION
  Report Type: Spontaneous
  Country: US (occurrence: US)
  Receive Date: 20200424
  Receipt Date: 20200424
  Transmission Date: 20200714
  Serious: Yes (Life-Threatening, Hospitalization, Other)
  Sender: FDA-Public Use
  Company Number: US-ELI_LILLY_AND_COMPANY-US202004008733

PATIENT
  Age: 76 Year
  Sex: Female

DRUGS (3)
  1. METOPROLOL. [Suspect]
     Active Substance: METOPROLOL
     Indication: INTENTIONAL OVERDOSE
  2. LOSARTAN. [Suspect]
     Active Substance: LOSARTAN
     Indication: INTENTIONAL OVERDOSE
  3. DULOXETINE HYDROCHLORIDE. [Suspect]
     Active Substance: DULOXETINE HYDROCHLORIDE
     Indication: INTENTIONAL OVERDOSE

REACTIONS (2)
  - Overdose [Unknown]
  - Pulmonary embolism [Unknown]
